FAERS Safety Report 24423675 (Version 1)
Quarter: 2024Q4

REPORT INFORMATION
  Report Type: Spontaneous
  Country: US (occurrence: US)
  Receive Date: 20241010
  Receipt Date: 20241010
  Transmission Date: 20250115
  Serious: Yes (Other)
  Sender: BRISTOL MYERS SQUIBB
  Company Number: US-BRISTOL-MYERS SQUIBB COMPANY-2024-156027

PATIENT
  Age: 67 Year
  Sex: Female

DRUGS (1)
  1. KENALOG [Suspect]
     Active Substance: TRIAMCINOLONE ACETONIDE
     Indication: Carpal tunnel syndrome
     Dosage: 21 ULTRASOUND-GUIDED CARPAL TUNNEL CSIS WITH 20 MG KENALOG APPROXIMATELY EVERY 3 MONTHS OVER A 6-YEA

REACTIONS (2)
  - Tendon rupture [Recovering/Resolving]
  - Off label use [Unknown]
